FAERS Safety Report 13592524 (Version 3)
Quarter: 2017Q3

REPORT INFORMATION
  Report Type: Report from Study
  Country: US (occurrence: US)
  Receive Date: 20170530
  Receipt Date: 20170815
  Transmission Date: 20171127
  Serious: Yes (Hospitalization, Other)
  Sender: FDA-Public Use
  Company Number: US-JNJFOC-20170416622

PATIENT
  Age: 78 Year
  Sex: Female
  Weight: 61 kg

DRUGS (23)
  1. IBRUTINIB [Suspect]
     Active Substance: IBRUTINIB
     Indication: CHRONIC LYMPHOCYTIC LEUKAEMIA
     Route: 048
     Dates: start: 20170403, end: 20170410
  2. PREMARIN [Concomitant]
     Active Substance: ESTROGENS, CONJUGATED
  3. HYOSCYAMINE. [Concomitant]
     Active Substance: HYOSCYAMINE
  4. AMITRIPTYLINE HCL [Concomitant]
     Active Substance: AMITRIPTYLINE
  5. FISH OIL [Concomitant]
     Active Substance: FISH OIL
  6. IBRUTINIB [Suspect]
     Active Substance: IBRUTINIB
     Indication: CHRONIC LYMPHOCYTIC LEUKAEMIA
     Route: 048
     Dates: start: 20170403, end: 20170522
  7. DIPHENHYDRAMIN [Concomitant]
     Active Substance: DIPHENHYDRAMINE
  8. FENOFIBRATE. [Concomitant]
     Active Substance: FENOFIBRATE
  9. BISOPROLOL FUMARATE. [Concomitant]
     Active Substance: BISOPROLOL FUMARATE
  10. RESVERATROL [Concomitant]
     Active Substance: DIETARY SUPPLEMENT\RESVERATROL
  11. CHLORAMBUCIL [Concomitant]
     Active Substance: CHLORAMBUCIL
  12. DEXAMETHASONE. [Concomitant]
     Active Substance: DEXAMETHASONE
  13. ZOFRAN [Concomitant]
     Active Substance: ONDANSETRON HYDROCHLORIDE
  14. TYLENOL [Concomitant]
     Active Substance: ACETAMINOPHEN
  15. CRANBERRY. [Concomitant]
     Active Substance: CRANBERRY
  16. VITAMIN D3 [Concomitant]
     Active Substance: CHOLECALCIFEROL
  17. VITAMIN B [Concomitant]
     Active Substance: VITAMIN B
  18. VITAMIN D [Concomitant]
     Active Substance: CHOLECALCIFEROL
  19. IBRUTINIB [Suspect]
     Active Substance: IBRUTINIB
     Indication: CHRONIC LYMPHOCYTIC LEUKAEMIA
     Route: 048
     Dates: start: 20170402
  20. PREVALITE [Concomitant]
     Active Substance: CHOLESTYRAMINE
  21. SULFADIAZINE. [Concomitant]
     Active Substance: SULFADIAZINE
  22. CYANOCOBALAMIN. [Concomitant]
     Active Substance: CYANOCOBALAMIN
  23. FUMARATE DISODIUM [Concomitant]
     Active Substance: DISODIUM FUMARATE

REACTIONS (17)
  - Contusion [Not Recovered/Not Resolved]
  - Deep vein thrombosis [Unknown]
  - Haematocrit decreased [Unknown]
  - Decreased appetite [Not Recovered/Not Resolved]
  - Off label use [Unknown]
  - Splenic infarction [Recovered/Resolved with Sequelae]
  - White blood cell count increased [Unknown]
  - Platelet count decreased [Unknown]
  - Haemarthrosis [Unknown]
  - Diarrhoea [Recovered/Resolved]
  - Haematoma [Not Recovered/Not Resolved]
  - Arthritis [Unknown]
  - Dyspepsia [Not Recovered/Not Resolved]
  - Arthralgia [Not Recovered/Not Resolved]
  - Splenic haematoma [Unknown]
  - Incorrect dose administered [Unknown]
  - Petechiae [Unknown]

NARRATIVE: CASE EVENT DATE: 201704
